FAERS Safety Report 13296606 (Version 1)
Quarter: 2017Q1

REPORT INFORMATION
  Report Type: Spontaneous
  Country: US (occurrence: US)
  Receive Date: 20170306
  Receipt Date: 20170306
  Transmission Date: 20170428
  Serious: No
  Sender: FDA-Public Use
  Company Number: US-ASTRAZENECA-2017SE20545

PATIENT
  Sex: Female

DRUGS (8)
  1. SYMBICORT [Suspect]
     Active Substance: BUDESONIDE\FORMOTEROL FUMARATE DIHYDRATE
     Indication: PULMONARY FIBROSIS
     Route: 055
  2. SYMBICORT [Suspect]
     Active Substance: BUDESONIDE\FORMOTEROL FUMARATE DIHYDRATE
     Indication: ASTHMA
     Route: 055
  3. SYMBICORT [Suspect]
     Active Substance: BUDESONIDE\FORMOTEROL FUMARATE DIHYDRATE
     Indication: ASTHMA
     Route: 055
  4. SYMBICORT [Suspect]
     Active Substance: BUDESONIDE\FORMOTEROL FUMARATE DIHYDRATE
     Indication: PULMONARY FIBROSIS
     Route: 055
  5. PULMICORT FLEXHALER [Suspect]
     Active Substance: BUDESONIDE
     Indication: ASTHMA
     Route: 055
  6. OXYGEN. [Concomitant]
     Active Substance: OXYGEN
     Indication: PULMONARY FIBROSIS
  7. OXYGEN. [Concomitant]
     Active Substance: OXYGEN
     Indication: ASTHMA
  8. PULMICORT FLEXHALER [Suspect]
     Active Substance: BUDESONIDE
     Indication: PULMONARY FIBROSIS
     Route: 055

REACTIONS (3)
  - Dysphonia [Not Recovered/Not Resolved]
  - Product use issue [Unknown]
  - Off label use [Unknown]
